FAERS Safety Report 25774963 (Version 1)
Quarter: 2025Q3

REPORT INFORMATION
  Report Type: Spontaneous
  Country: US (occurrence: US)
  Receive Date: 20250908
  Receipt Date: 20250908
  Transmission Date: 20251020
  Serious: No
  Sender: GRIFOLS
  Company Number: US-IGSA-BIG0037745

PATIENT
  Age: 87 Year
  Sex: Female
  Weight: 81.3 kg

DRUGS (3)
  1. GAMUNEX-C [Suspect]
     Active Substance: HUMAN IMMUNOGLOBULIN G
     Indication: Polyneuropathy
     Dosage: 80 GRAM, Q.2WK.
     Route: 042
     Dates: start: 20250825
  2. CLONIDINE [Concomitant]
     Active Substance: CLONIDINE
     Indication: Premedication
     Route: 048
  3. HYDROXYCHLOROQUINE [Concomitant]
     Active Substance: HYDROXYCHLOROQUINE
     Route: 048

REACTIONS (2)
  - Rash [Unknown]
  - Pruritus [Unknown]

NARRATIVE: CASE EVENT DATE: 20250825
